FAERS Safety Report 19205442 (Version 1)
Quarter: 2021Q2

REPORT INFORMATION
  Report Type: Spontaneous
  Country: US (occurrence: US)
  Receive Date: 20210430
  Receipt Date: 20210430
  Transmission Date: 20210717
  Serious: Yes (Hospitalization)
  Sender: FDA-Public Use
  Company Number: None

PATIENT
  Age: 50 Year
  Sex: Female

DRUGS (5)
  1. NITROGLYCERIN. [Concomitant]
     Active Substance: NITROGLYCERIN
  2. ATORVASTATIN [Concomitant]
     Active Substance: ATORVASTATIN
  3. SYMBICORT [Concomitant]
     Active Substance: BUDESONIDE\FORMOTEROL FUMARATE DIHYDRATE
  4. REPATHA [Suspect]
     Active Substance: EVOLOCUMAB
     Indication: HYPERLIPIDAEMIA
     Route: 058
     Dates: start: 20201009
  5. ALPRAZOLAM. [Concomitant]
     Active Substance: ALPRAZOLAM

REACTIONS (1)
  - Coronary artery bypass [None]

NARRATIVE: CASE EVENT DATE: 20210430
